FAERS Safety Report 8901795 (Version 1)
Quarter: 2012Q4

REPORT INFORMATION
  Report Type: Spontaneous
  Country: US (occurrence: None)
  Receive Date: 20121106
  Receipt Date: 20121106
  Transmission Date: 20130627
  Serious: Yes (Hospitalization)
  Sender: FDA-Public Use
  Company Number: 54973 AE # 1088

PATIENT
  Age: 9 Month
  Sex: Male

DRUGS (2)
  1. HYLAND^S BABY TEETHING TABLETS [Suspect]
     Indication: TEETHING PAIN
  2. CARBAMAZEPINE TABLETS USP 200 MG [Suspect]
     Indication: CONVULSION

REACTIONS (3)
  - Dizziness [None]
  - Vertigo [None]
  - Wrong drug administered [None]
